FAERS Safety Report 6675135-3 (Version None)
Quarter: 2010Q2

REPORT INFORMATION
  Report Type: 
  Country: None (occurrence: None)
  Receive Date: 20100409
  Receipt Date: 20100330
  Transmission Date: 20101027
  Serious: Yes (Life-Threatening, Other)
  Sender: FDA-Public Use
  Company Number: BR-PFIZER INC-2010033777

PATIENT
  Age: 49 Year
  Sex: Female
  Weight: 47 kg

DRUGS (7)
  1. REVATIO [Suspect]
     Indication: PULMONARY HYPERTENSION
     Dosage: 20 MG, 3X/DAY
     Route: 048
     Dates: start: 20100224, end: 20100101
  2. SILDENAFIL CITRATE [Suspect]
     Indication: PULMONARY HYPERTENSION
     Dosage: 25 MG, EVERY 8 HOURS
     Route: 048
  3. PREDNISONE [Concomitant]
     Dosage: 5 MG, UNK
  4. VERAPAMIL [Concomitant]
     Dosage: UNK
  5. PENICILLAMINE [Concomitant]
     Dosage: UNK
  6. SYMBICORT [Concomitant]
     Dosage: UNK
  7. OMEPRAZOLE [Concomitant]
     Dosage: UNK

REACTIONS (8)
  - FATIGUE [None]
  - HEADACHE [None]
  - NECK PAIN [None]
  - OEDEMA PERIPHERAL [None]
  - QUADRIPARESIS [None]
  - RESPIRATORY FAILURE [None]
  - SENSATION OF HEAVINESS [None]
  - TACHYCARDIA [None]
